FAERS Safety Report 24353761 (Version 1)
Quarter: 2024Q3

REPORT INFORMATION
  Report Type: Spontaneous
  Country: US (occurrence: None)
  Receive Date: 20240920
  Receipt Date: 20240920
  Transmission Date: 20241016
  Serious: Yes (Hospitalization)
  Sender: Public
  Company Number: None

PATIENT
  Age: 69 Year
  Sex: Male

DRUGS (8)
  1. VANCOMYCIN [Suspect]
     Active Substance: VANCOMYCIN
     Indication: Cellulitis
     Dosage: 1000MG ONCE INTRAVENOUS DRIP
     Route: 041
  2. VANCOMYCIN [Suspect]
     Active Substance: VANCOMYCIN
     Indication: Herpes virus infection
  3. VANCOMYCIN [Suspect]
     Active Substance: VANCOMYCIN
     Indication: Staphylococcal infection
  4. ACYCLOVIR [Suspect]
     Active Substance: ACYCLOVIR
  5. CEFTRIAXONE [Suspect]
     Active Substance: CEFTRIAXONE\CEFTRIAXONE SODIUM
  6. HYDRALAZINE [Suspect]
     Active Substance: HYDRALAZINE HYDROCHLORIDE
  7. NIFEDIPINE [Suspect]
     Active Substance: NIFEDIPINE
  8. CARVEDILOL [Suspect]
     Active Substance: CARVEDILOL

REACTIONS (7)
  - Anaphylactic shock [None]
  - Unresponsive to stimuli [None]
  - Acute respiratory failure [None]
  - Vasculitis [None]
  - Angioedema [None]
  - Laryngeal oedema [None]
  - Skin hyperpigmentation [None]

NARRATIVE: CASE EVENT DATE: 20240501
